FAERS Safety Report 6587031-0 (Version None)
Quarter: 2010Q1

REPORT INFORMATION
  Report Type: 
  Country: None (occurrence: None)
  Receive Date: 20100217
  Receipt Date: 20090413
  Transmission Date: 20100710
  Serious: No
  Sender: FDA-Public Use
  Company Number: US-ALLERGAN-0905033US

PATIENT
  Sex: Male

DRUGS (4)
  1. BOTOX COSMETIC [Suspect]
     Indication: SKIN WRINKLING
     Dosage: 22 UNITS, SINGLE
     Route: 030
     Dates: start: 20090305, end: 20090305
  2. BOTOX COSMETIC [Suspect]
     Dosage: 66 UNITS, SINGLE
     Route: 030
     Dates: start: 20090326, end: 20090326
  3. HEART RHYTHM MEDICATION (UNKNOWN) [Concomitant]
  4. PAIN MEDICATION (UNKNOWN) [Concomitant]
     Indication: BACK PAIN

REACTIONS (3)
  - ERYTHEMA [None]
  - SWELLING FACE [None]
  - THERAPEUTIC RESPONSE DECREASED [None]
